FAERS Safety Report 9734291 (Version 1)
Quarter: 2013Q4

REPORT INFORMATION
  Report Type: Report from Study
  Country: GB (occurrence: GB)
  Receive Date: 20131205
  Receipt Date: 20131205
  Transmission Date: 20140711
  Serious: Yes (Death, Other)
  Sender: FDA-Public Use
  Company Number: GB-ROCHE-1313647

PATIENT
  Age: 47 Year
  Sex: Male

DRUGS (5)
  1. XELODA [Suspect]
     Indication: PRODUCT USED FOR UNKNOWN INDICATION
     Route: 065
     Dates: start: 201011
  2. XELODA [Suspect]
     Route: 065
     Dates: start: 20101222
  3. AVASTIN [Suspect]
     Indication: PRODUCT USED FOR UNKNOWN INDICATION
     Route: 065
     Dates: end: 201112
  4. IRINOTECAN [Suspect]
     Indication: PRODUCT USED FOR UNKNOWN INDICATION
     Route: 065
     Dates: start: 20101022
  5. IRINOTECAN [Suspect]
     Route: 065
     Dates: start: 201201, end: 201202

REACTIONS (5)
  - Death [Fatal]
  - Pulmonary embolism [Unknown]
  - Metastases to bone [Unknown]
  - Gastrointestinal toxicity [Unknown]
  - Blood pressure increased [Unknown]
